FAERS Safety Report 10249070 (Version 4)
Quarter: 2015Q2

REPORT INFORMATION
  Report Type: Spontaneous
  Country: US (occurrence: US)
  Receive Date: 20140620
  Receipt Date: 20150602
  Transmission Date: 20150821
  Serious: Yes (Disabling)
  Sender: FDA-Public Use
  Company Number: US-MERCK-1406USA007295

PATIENT
  Sex: Male
  Weight: 111.11 kg

DRUGS (3)
  1. PROSCAR [Suspect]
     Active Substance: FINASTERIDE
     Indication: ANDROGENETIC ALOPECIA
     Dosage: 1.25 MG, 4X WEEK
     Route: 048
     Dates: start: 2010, end: 2012
  2. FINASTERIDE. [Suspect]
     Active Substance: FINASTERIDE
     Indication: ANDROGENETIC ALOPECIA
     Dosage: 5 MG, UNK
     Route: 048
     Dates: start: 20100326, end: 20120703
  3. PROPECIA [Suspect]
     Active Substance: FINASTERIDE
     Dosage: UNK
     Route: 048
     Dates: start: 201004, end: 201207

REACTIONS (20)
  - Libido decreased [Unknown]
  - Ejaculation failure [Unknown]
  - Genital disorder male [Unknown]
  - Blood testosterone decreased [Unknown]
  - Affective disorder [Unknown]
  - Wrong technique in drug usage process [Unknown]
  - Peyronie^s disease [Unknown]
  - Drug administration error [Unknown]
  - Hypertension [Unknown]
  - Anxiety [Unknown]
  - Inappropriate schedule of drug administration [Unknown]
  - Premature ejaculation [Unknown]
  - Sexual dysfunction [Unknown]
  - Panic disorder without agoraphobia [Unknown]
  - Erectile dysfunction [Unknown]
  - Overdose [Unknown]
  - Depression [Unknown]
  - Adverse event [Unknown]
  - Cognitive disorder [Unknown]
  - Reproductive tract disorder [Unknown]

NARRATIVE: CASE EVENT DATE: 2010
